FAERS Safety Report 5631940-3 (Version None)
Quarter: 2008Q1

REPORT INFORMATION
  Report Type: 
  Country: None (occurrence: None)
  Receive Date: 20080220
  Receipt Date: 20080215
  Transmission Date: 20080703
  Serious: Yes (Death, Hospitalization)
  Sender: FDA-Public Use
  Company Number: JP-ELI_LILLY_AND_COMPANY-JP200801006433

PATIENT
  Sex: Female
  Weight: 52 kg

DRUGS (10)
  1. RALOXIFENE HYDROCHLORIDE [Suspect]
     Indication: OSTEOPOROSIS POSTMENOPAUSAL
     Dosage: 60 MG, DAILY (1/D)
     Route: 048
     Dates: start: 20041020, end: 20061107
  2. RALOXIFENE HYDROCHLORIDE [Suspect]
     Dosage: 60 MG, DAILY (1/D)
     Route: 048
     Dates: start: 20061124, end: 20070706
  3. LOXONIN [Concomitant]
     Indication: SPINAL OSTEOARTHRITIS
     Dosage: 60 MG, 3/D
     Route: 048
     Dates: start: 19981120, end: 20070706
  4. NU-LOTAN [Concomitant]
     Indication: HYPERTENSION
     Dosage: 12.5 MG, DAILY (1/D)
     Route: 048
     Dates: start: 20061106, end: 20070706
  5. HALCION [Concomitant]
     Indication: INSOMNIA
     Dosage: 0.25 MG, DAILY (1/D)
     Route: 048
     Dates: start: 20061106, end: 20070706
  6. AZUCURENIN S [Concomitant]
     Indication: GASTRITIS
     Dosage: 1.5 G, DAILY (1/D)
     Route: 048
     Dates: start: 20061106, end: 20070706
  7. XYLOCAINE [Concomitant]
     Dosage: UNK, WEEKLY (1/W)
  8. DECADRON [Concomitant]
     Dosage: 2 MG, WEEKLY (1/W)
  9. FLOMOX [Concomitant]
     Indication: ABSCESS NECK
     Dosage: 1 D/F, 3/D
     Route: 048
     Dates: start: 20070627, end: 20070627
  10. CEFAMEZIN [Concomitant]
     Indication: ABSCESS NECK
     Dosage: 2 G, DAILY (1/D)
     Dates: start: 20070627, end: 20070627

REACTIONS (1)
  - LEUKAEMIA [None]
